FAERS Safety Report 25198737 (Version 2)
Quarter: 2025Q2

REPORT INFORMATION
  Report Type: Report from Study
  Country: US (occurrence: US)
  Receive Date: 20250415
  Receipt Date: 20250521
  Transmission Date: 20250717
  Serious: Yes (Hospitalization, Other)
  Sender: ACADIA PHARMACEUTICALS
  Company Number: US-ACADIA PHARMACEUTICALS INC.-ACA-2025-TRF-004205

PATIENT
  Sex: Female

DRUGS (1)
  1. DAYBUE [Suspect]
     Active Substance: TROFINETIDE
     Indication: Rett syndrome
     Dosage: 30 MILLILITER, BID

REACTIONS (5)
  - Pneumonia [Unknown]
  - Rhinovirus infection [Unknown]
  - Oxygen saturation decreased [Recovering/Resolving]
  - Crying [Not Recovered/Not Resolved]
  - Viral infection [Not Recovered/Not Resolved]
